FAERS Safety Report 18793109 (Version 1)
Quarter: 2021Q1

REPORT INFORMATION
  Report Type: Spontaneous
  Country: US (occurrence: US)
  Receive Date: 20210127
  Receipt Date: 20210127
  Transmission Date: 20210419
  Serious: Yes (Hospitalization, Other)
  Sender: FDA-Public Use
  Company Number: US-PFIZER INC-2021035089

PATIENT
  Age: 16 Year
  Sex: Male

DRUGS (1)
  1. RITUXIMAB. [Suspect]
     Active Substance: RITUXIMAB
     Indication: WARM TYPE HAEMOLYTIC ANAEMIA
     Dosage: UNK; 4?DOSE COURSE

REACTIONS (5)
  - Hypogammaglobulinaemia [Unknown]
  - Lymphopenia [Unknown]
  - Respiratory distress [Unknown]
  - Off label use [Unknown]
  - Pneumonia [Unknown]
